FAERS Safety Report 13540026 (Version 1)
Quarter: 2017Q2

REPORT INFORMATION
  Report Type: Spontaneous
  Country: US (occurrence: US)
  Receive Date: 20170512
  Receipt Date: 20170512
  Transmission Date: 20170830
  Serious: Yes (Hospitalization)
  Sender: FDA-Public Use
  Company Number: US-ASTRAZENECA-2017SE48466

PATIENT
  Sex: Female
  Weight: 81.6 kg

DRUGS (13)
  1. GLIPIZIDE. [Concomitant]
     Active Substance: GLIPIZIDE
  2. ALBUTEROL SOLUTION [Concomitant]
     Route: 055
  3. DONEPEZIL. [Concomitant]
     Active Substance: DONEPEZIL
  4. LEVAQUIN [Concomitant]
     Active Substance: LEVOFLOXACIN
  5. PANTOPRAZOLE [Concomitant]
     Active Substance: PANTOPRAZOLE
  6. SPIRIVA [Concomitant]
     Active Substance: TIOTROPIUM BROMIDE MONOHYDRATE
     Dates: start: 2016
  7. SYMBICORT [Suspect]
     Active Substance: BUDESONIDE\FORMOTEROL FUMARATE DIHYDRATE
     Indication: CHRONIC OBSTRUCTIVE PULMONARY DISEASE
     Dosage: 160-4.5 TWO PUFFS TWICE A DAY STARTED A YEAR AND A HALF AGO
     Route: 055
     Dates: start: 2015, end: 201701
  8. SYMBICORT [Suspect]
     Active Substance: BUDESONIDE\FORMOTEROL FUMARATE DIHYDRATE
     Indication: CHRONIC OBSTRUCTIVE PULMONARY DISEASE
     Dosage: 160-4.5 TWO PUFFS TWICE A DAY STARTED A YEAR AND A HALF AGO
     Route: 055
  9. AMLODIPINE [Concomitant]
     Active Substance: AMLODIPINE BESYLATE
  10. TOPIRAMATE. [Concomitant]
     Active Substance: TOPIRAMATE
  11. GABAPENTIN. [Concomitant]
     Active Substance: GABAPENTIN
  12. LEVETIRACETAM. [Concomitant]
     Active Substance: LEVETIRACETAM
  13. OXYCODONE [Concomitant]
     Active Substance: OXYCODONE

REACTIONS (6)
  - Asthma [Unknown]
  - Insurance issue [Unknown]
  - Malaise [Not Recovered/Not Resolved]
  - Fatigue [Not Recovered/Not Resolved]
  - Chest discomfort [Unknown]
  - Dyspnoea [Not Recovered/Not Resolved]
